FAERS Safety Report 4992700-X (Version None)
Quarter: 2006Q1

REPORT INFORMATION
  Report Type: 
  Country: None (occurrence: None)
  Receive Date: 20060315
  Receipt Date: 20060117
  Transmission Date: 20060701
  Serious: Yes (Other)
  Sender: FDA-Public Use
  Company Number: US200512000381

PATIENT
  Age: 54 Year
  Sex: Female
  Weight: 82 kg

DRUGS (5)
  1. GEMZAR [Suspect]
     Indication: BREAST CANCER
     Dosage: 1500 MG, INTRAVENOUS ; 1000 MG, INTRAVENOUS
     Route: 042
     Dates: start: 20050909, end: 20051021
  2. GEMZAR [Suspect]
     Indication: BREAST CANCER
     Dosage: 1500 MG, INTRAVENOUS ; 1000 MG, INTRAVENOUS
     Route: 042
     Dates: start: 20051021, end: 20051021
  3. ZOFRAN [Concomitant]
  4. ZOMETA [Concomitant]
  5. THERAPEUTIC RADIOPHARMACEUTICALS [Concomitant]

REACTIONS (1)
  - PNEUMONITIS [None]
